FAERS Safety Report 7135100-9 (Version None)
Quarter: 2010Q4

REPORT INFORMATION
  Report Type: 
  Country: None (occurrence: None)
  Receive Date: 20101203
  Receipt Date: 20101119
  Transmission Date: 20110411
  Serious: Yes (Other)
  Sender: FDA-Public Use
  Company Number: TR-ELI_LILLY_AND_COMPANY-TR201011006388

PATIENT
  Age: 38 Year
  Sex: Female

DRUGS (3)
  1. ZYPREXA [Suspect]
     Indication: BIPOLAR DISORDER
     Dosage: 15 MG, DAILY (1/D)
     Route: 065
  2. VALPROIC ACID [Concomitant]
     Indication: BIPOLAR DISORDER
     Dosage: 1000 MG, DAILY (1/D)
     Route: 065
  3. PAROXETINE [Concomitant]
     Indication: BIPOLAR DISORDER
     Dosage: 40 MG, DAILY (1/D)
     Route: 065

REACTIONS (5)
  - BENIGN INTRACRANIAL HYPERTENSION [None]
  - DRUG INTERACTION [None]
  - INTRACRANIAL PRESSURE INCREASED [None]
  - PAPILLOEDEMA [None]
  - WEIGHT INCREASED [None]
